FAERS Safety Report 8577264-6 (Version None)
Quarter: 2012Q3

REPORT INFORMATION
  Report Type: 
  Country: None (occurrence: None)
  Receive Date: 20120807
  Receipt Date: 20120530
  Transmission Date: 20120928
  Serious: No
  Sender: FDA-Public Use
  Company Number: US-COVIDIEN/TYCO HEALTHCARE/MALLINCKRODT-T201202497

PATIENT

DRUGS (2)
  1. DILAUDID [Concomitant]
     Indication: SCIATICA
     Dosage: UNK
  2. PENNSAID [Suspect]
     Indication: SCIATICA
     Dosage: 40 DROPS, QID TO 3 AREAS
     Route: 062
     Dates: start: 20120201

REACTIONS (2)
  - BLOOD ALCOHOL INCREASED [None]
  - BREATH ODOUR [None]
